FAERS Safety Report 15129992 (Version 2)
Quarter: 2018Q3

REPORT INFORMATION
  Report Type: Spontaneous
  Country: AT (occurrence: AT)
  Receive Date: 20180711
  Receipt Date: 20180716
  Transmission Date: 20181010
  Serious: Yes (Other)
  Sender: FDA-Public Use
  Company Number: AT-PFIZER INC-2018273516

PATIENT
  Age: 12 Year
  Sex: Female

DRUGS (4)
  1. VINCRISTINE SULFATE. [Suspect]
     Active Substance: VINCRISTINE SULFATE
     Indication: EWING^S SARCOMA
     Dosage: 1.5 MG/M2, UNK
     Route: 065
  2. ETOPOSIDE. [Suspect]
     Active Substance: ETOPOSIDE
     Indication: EWING^S SARCOMA
     Dosage: 150 MG/M2, UNK
     Route: 065
  3. IFOSFAMIDE. [Suspect]
     Active Substance: IFOSFAMIDE
     Indication: EWING^S SARCOMA
     Dosage: 3000 MG/M2, UNK
     Route: 065
  4. DOXORUBICIN HCL [Suspect]
     Active Substance: DOXORUBICIN HYDROCHLORIDE
     Indication: EWING^S SARCOMA
     Dosage: 20 MG/M2, UNK
     Route: 065

REACTIONS (5)
  - Human herpes virus 6 serology [Unknown]
  - Hepatosplenomegaly [Recovered/Resolved]
  - Histiocytosis haematophagic [Recovered/Resolved]
  - Pyrexia [Recovered/Resolved]
  - Pancytopenia [Recovered/Resolved]
